FAERS Safety Report 19932835 (Version 1)
Quarter: 2021Q4

REPORT INFORMATION
  Report Type: Spontaneous
  Country: US (occurrence: US)
  Receive Date: 20211007
  Receipt Date: 20211007
  Transmission Date: 20220303
  Serious: Yes (Other)
  Sender: FDA-Public Use
  Company Number: None

PATIENT
  Age: 75 Year
  Sex: Female

DRUGS (10)
  1. NINLARO [Suspect]
     Active Substance: IXAZOMIB CITRATE
     Indication: Plasma cell myeloma
     Dosage: ?          OTHER FREQUENCY:WEEKLY;
     Route: 048
     Dates: start: 20200513, end: 20210923
  2. Acyclovir 400mg tablets [Concomitant]
     Dates: start: 20200326
  3. ALPRAZOLAM [Concomitant]
     Active Substance: ALPRAZOLAM
     Dates: start: 20200326
  4. AMLODIPINE [Concomitant]
     Active Substance: AMLODIPINE BESYLATE
     Dates: start: 20200427
  5. Atenolol 50mg tablets [Concomitant]
     Dates: start: 20210208
  6. ESCITALOPRAM OXALATE [Concomitant]
     Active Substance: ESCITALOPRAM OXALATE
     Dates: start: 20200211
  7. OXYBUTYNIN [Concomitant]
     Active Substance: OXYBUTYNIN
     Dates: start: 20200310
  8. Phos-Nak powder packets [Concomitant]
     Dates: start: 20210308
  9. REVLIMID [Concomitant]
     Active Substance: LENALIDOMIDE
     Dates: start: 20200513
  10. SIMVASTATIN [Concomitant]
     Active Substance: SIMVASTATIN
     Dates: start: 20210806

REACTIONS (4)
  - Disease progression [None]
  - Plasma cell myeloma [None]
  - Plasma cell myeloma recurrent [None]
  - Drug ineffective [None]

NARRATIVE: CASE EVENT DATE: 20210923
